FAERS Safety Report 5782913-1 (Version None)
Quarter: 2008Q2

REPORT INFORMATION
  Report Type: 
  Country: None (occurrence: None)
  Receive Date: 20080624
  Receipt Date: 20080617
  Transmission Date: 20081010
  Serious: Yes (Hospitalization, Other)
  Sender: FDA-Public Use
  Company Number: US-MERCK-0707USA00483

PATIENT
  Age: 73 Year
  Sex: Female
  Weight: 69 kg

DRUGS (10)
  1. FOSAMAX [Suspect]
     Indication: OSTEOPOROSIS
     Route: 048
     Dates: start: 20001003, end: 20020501
  2. FOSAMAX [Suspect]
     Route: 048
     Dates: start: 20020501, end: 20060501
  3. FOSAMAX [Suspect]
     Route: 048
     Dates: end: 20070220
  4. FOSAMAX [Suspect]
     Indication: OSTEOPENIA
     Route: 048
     Dates: start: 20001003, end: 20020501
  5. FOSAMAX [Suspect]
     Route: 048
     Dates: start: 20020501, end: 20060501
  6. FOSAMAX [Suspect]
     Route: 048
     Dates: end: 20070220
  7. PREMARIN [Concomitant]
     Route: 065
     Dates: start: 19650101
  8. METOPROLOL [Concomitant]
     Route: 065
     Dates: start: 20050101
  9. BONIVA [Concomitant]
     Route: 065
     Dates: start: 20060627
  10. LEVOTHYROXINE SODIUM [Concomitant]
     Indication: HYPOTHYROIDISM
     Route: 065
     Dates: start: 19970101

REACTIONS (28)
  - ANGINA PECTORIS [None]
  - ANIMAL BITE [None]
  - ARTHRALGIA [None]
  - BLOOD CHOLESTEROL INCREASED [None]
  - BREAST PAIN [None]
  - CORONARY ARTERY DISEASE [None]
  - CYST [None]
  - DYSPEPSIA [None]
  - DYSPHAGIA [None]
  - FUNGAL INFECTION [None]
  - GASTRIC INFECTION [None]
  - HEAD INJURY [None]
  - HYPERLIPIDAEMIA [None]
  - HYPERTENSION [None]
  - NEUROPATHY PERIPHERAL [None]
  - OEDEMA MOUTH [None]
  - ORAL FIBROMA [None]
  - ORAL INFECTION [None]
  - OSTEOARTHRITIS [None]
  - OSTEONECROSIS [None]
  - PAIN IN JAW [None]
  - RESORPTION BONE INCREASED [None]
  - SENSITIVITY OF TEETH [None]
  - SINUS BRADYCARDIA [None]
  - SKIN CANCER [None]
  - TOOTH FRACTURE [None]
  - TOOTH INFECTION [None]
  - TOOTHACHE [None]
